FAERS Safety Report 8945560 (Version 2)
Quarter: 2012Q4

REPORT INFORMATION
  Report Type: 
  Country: RO (occurrence: RO)
  Receive Date: 20121205
  Receipt Date: 20121214
  Transmission Date: 20130627
  Serious: Yes (Death, Other)
  Sender: FDA-Public Use
  Company Number: RO-PFIZER INC-2012305062

PATIENT
  Age: 77 Year
  Sex: Male
  Weight: 65 kg

DRUGS (3)
  1. INSPRA [Suspect]
     Indication: CARDIAC INSUFFICIENCY
     Dosage: 25 mg, 1x/day
     Route: 048
     Dates: start: 201109
  2. TROMBOSTOP [Concomitant]
     Indication: THROMBOSIS PROPHYLAXIS
     Dosage: 2 mg, UNK
     Route: 048
     Dates: start: 2000
  3. CORLENTOR [Concomitant]
     Indication: CARDIAC INSUFFICIENCY
     Dosage: 5 mg, 2x/day
     Route: 048
     Dates: start: 2011

REACTIONS (2)
  - Dementia [Fatal]
  - Hip fracture [Unknown]
